FAERS Safety Report 11273047 (Version 1)
Quarter: 2015Q3

REPORT INFORMATION
  Report Type: Spontaneous
  Country: US (occurrence: US)
  Receive Date: 20150715
  Receipt Date: 20150715
  Transmission Date: 20151125
  Serious: Yes (Hospitalization, Other)
  Sender: FDA-Public Use
  Company Number: US-AMGEN-USASP2015069172

PATIENT
  Age: 70 Year
  Sex: Female

DRUGS (1)
  1. ENBREL [Suspect]
     Active Substance: ETANERCEPT
     Indication: RHEUMATOID ARTHRITIS
     Dosage: 50 MG, QWK
     Route: 065
     Dates: start: 2010

REACTIONS (6)
  - Hand deformity [Not Recovered/Not Resolved]
  - Arthritis [Recovered/Resolved]
  - Deformity [Not Recovered/Not Resolved]
  - Spine malformation [Not Recovered/Not Resolved]
  - Joint destruction [Recovered/Resolved]
  - Dysgraphia [Not Recovered/Not Resolved]
